FAERS Safety Report 12834589 (Version 2)
Quarter: 2016Q4

REPORT INFORMATION
  Report Type: Spontaneous
  Country: US (occurrence: US)
  Receive Date: 20161010
  Receipt Date: 20161102
  Transmission Date: 20170207
  Serious: Yes (Other)
  Sender: FDA-Public Use
  Company Number: US-PFIZER INC-2016469320

PATIENT
  Age: 55 Year
  Sex: Male

DRUGS (8)
  1. GABAPENTIN. [Suspect]
     Active Substance: GABAPENTIN
     Dosage: VERY HIGH DOSE OF GABAPENTIN
  2. LISINOPRIL. [Concomitant]
     Active Substance: LISINOPRIL
     Dosage: 5 MG, DAILY
  3. NIACIN SA [Concomitant]
     Dosage: 250 MG, DAILY
  4. GABAPENTIN. [Suspect]
     Active Substance: GABAPENTIN
     Dosage: 300 MG, 3X/DAY
  5. VOLTAREN [Concomitant]
     Active Substance: DICLOFENAC SODIUM
     Dosage: UNK UNK, AS NEEDED(3X AS NEEDED)
  6. VITAMIN D3 [Concomitant]
     Active Substance: CHOLECALCIFEROL
     Dosage: UNK UNK, WEEKLY(50000, 1 ONCE A WEEK )
  7. METFORMIN [Concomitant]
     Active Substance: METFORMIN HYDROCHLORIDE
     Dosage: 1000 MG, 2X/DAY
  8. GABAPENTIN. [Suspect]
     Active Substance: GABAPENTIN
     Indication: NEURALGIA
     Dosage: VERY LOW DOSE OF GABAPENTIN

REACTIONS (12)
  - Drug ineffective for unapproved indication [Unknown]
  - Diabetes mellitus [Not Recovered/Not Resolved]
  - Pain in extremity [Unknown]
  - Discomfort [Unknown]
  - Exostosis [Not Recovered/Not Resolved]
  - Nerve injury [Not Recovered/Not Resolved]
  - Fall [Unknown]
  - Arthropathy [Unknown]
  - Activities of daily living impaired [Unknown]
  - Pain [Unknown]
  - Spinal fracture [Unknown]
  - Nerve compression [Unknown]

NARRATIVE: CASE EVENT DATE: 20150114
